FAERS Safety Report 25944635 (Version 1)
Quarter: 2025Q4

REPORT INFORMATION
  Report Type: Spontaneous
  Country: CN (occurrence: CN)
  Receive Date: 20251021
  Receipt Date: 20251021
  Transmission Date: 20260118
  Serious: Yes (Hospitalization)
  Sender: PFIZER
  Company Number: CN-PFIZER INC-PV202500122568

PATIENT
  Age: 13 Year
  Sex: Male
  Weight: 45.5 kg

DRUGS (4)
  1. METHOTREXATE SODIUM [Suspect]
     Active Substance: METHOTREXATE SODIUM
     Indication: Acute lymphocytic leukaemia
     Dosage: 0.7 G, 1X/DAY
     Route: 041
     Dates: start: 20250908, end: 20250908
  2. METHOTREXATE SODIUM [Suspect]
     Active Substance: METHOTREXATE SODIUM
     Dosage: 6.3 G, 1X/DAY
     Route: 041
     Dates: start: 20250908, end: 20250908
  3. SODIUM CHLORIDE [Concomitant]
     Active Substance: SODIUM CHLORIDE
     Indication: Acute lymphocytic leukaemia
     Dosage: 100 ML, 1X/DAY
     Route: 041
     Dates: start: 20250908, end: 20250908
  4. DEXTROSE [Concomitant]
     Active Substance: DEXTROSE MONOHYDRATE
     Indication: Acute lymphocytic leukaemia
     Dosage: 500 ML, 1X/DAY
     Route: 041
     Dates: start: 20250908, end: 20250908

REACTIONS (4)
  - Oral infection [Recovering/Resolving]
  - Upper respiratory tract congestion [Recovering/Resolving]
  - Mucosal erosion [Recovering/Resolving]
  - Mouth ulceration [Recovered/Resolved]

NARRATIVE: CASE EVENT DATE: 20250912
